FAERS Safety Report 7815373-7 (Version None)
Quarter: 2011Q4

REPORT INFORMATION
  Report Type: 
  Country: None (occurrence: None)
  Receive Date: 20111014
  Receipt Date: 20111011
  Transmission Date: 20120403
  Serious: Yes (Death, Hospitalization, Other)
  Sender: FDA-Public Use
  Company Number: JP-BRISTOL-MYERS SQUIBB COMPANY-16124935

PATIENT
  Age: 66 Year
  Sex: Male

DRUGS (3)
  1. ZITHROMAX [Concomitant]
     Indication: PROPHYLAXIS
     Dates: start: 20100403, end: 20100417
  2. EPZICOM [Suspect]
     Indication: HIV INFECTION
     Dosage: 1 DF = 1 TABS
     Route: 048
     Dates: start: 20100403, end: 20100420
  3. REYATAZ [Suspect]
     Indication: HIV INFECTION
     Route: 048
     Dates: start: 20100403, end: 20100420

REACTIONS (5)
  - ALANINE AMINOTRANSFERASE INCREASED [None]
  - ASPARTATE AMINOTRANSFERASE INCREASED [None]
  - DEATH [None]
  - GASTROINTESTINAL HAEMORRHAGE [None]
  - BLOOD ALKALINE PHOSPHATASE INCREASED [None]
